FAERS Safety Report 5373896-7 (Version None)
Quarter: 2007Q2

REPORT INFORMATION
  Report Type: 
  Country: None (occurrence: None)
  Receive Date: 20070628
  Receipt Date: 20070620
  Transmission Date: 20071010
  Serious: Yes (Death, Life-Threatening, Hospitalization, Disabling, Other)
  Sender: FDA-Public Use
  Company Number: GB-PFIZER INC-2007051060

PATIENT
  Age: 74 Year
  Sex: Female

DRUGS (1)
  1. FRAGMIN [Suspect]
     Route: 058
     Dates: start: 20070223, end: 20070224

REACTIONS (3)
  - BRAIN OEDEMA [None]
  - CEREBRAL HAEMORRHAGE [None]
  - HAEMATOMA [None]
